FAERS Safety Report 24778211 (Version 1)
Quarter: 2024Q4

REPORT INFORMATION
  Report Type: Spontaneous
  Country: US (occurrence: US)
  Receive Date: 20241226
  Receipt Date: 20241226
  Transmission Date: 20250114
  Serious: Yes (Hospitalization)
  Sender: MYLAN
  Company Number: US-MYLANLABS-2024M1114240

PATIENT
  Age: 29 Year
  Sex: Female

DRUGS (3)
  1. METHIMAZOLE [Suspect]
     Active Substance: METHIMAZOLE
     Indication: Graves^ disease
     Dosage: 10 MILLIGRAM
     Route: 065
  2. PROPRANOLOL [Suspect]
     Active Substance: PROPRANOLOL HYDROCHLORIDE
     Indication: Graves^ disease
     Dosage: 20 MILLIGRAM, TID (THREE TIMES A DAY)
     Route: 065
  3. DEXAMETHASONE [Suspect]
     Active Substance: DEXAMETHASONE
     Indication: Tonsillitis
     Dosage: 10 MILLIGRAM
     Route: 065

REACTIONS (3)
  - Agranulocytosis [Recovered/Resolved]
  - Pancreatitis acute [Recovered/Resolved]
  - Thyroid stimulating immunoglobulin increased [Unknown]
